FAERS Safety Report 5513672-5 (Version None)
Quarter: 2007Q4

REPORT INFORMATION
  Report Type: 
  Country: None (occurrence: None)
  Receive Date: 20071112
  Receipt Date: 20071105
  Transmission Date: 20080405
  Serious: Yes (Other)
  Sender: FDA-Public Use
  Company Number: US-GENENTECH-232661

PATIENT
  Sex: Female
  Weight: 62.131 kg

DRUGS (5)
  1. LUCENTIS [Suspect]
     Indication: MACULAR DEGENERATION
     Dates: start: 20061108
  2. TYLENOL #3 (UNITED STATES) [Concomitant]
     Indication: PAIN
     Dosage: UNK, PRN
  3. VICODIN [Concomitant]
     Indication: PAIN
     Dosage: UNK, PRN
  4. ALEVE [Concomitant]
     Indication: PAIN
  5. LOMOTIL [Concomitant]

REACTIONS (1)
  - CHEST PAIN [None]
